FAERS Safety Report 24194589 (Version 2)
Quarter: 2024Q3

REPORT INFORMATION
  Report Type: Spontaneous
  Country: US (occurrence: US)
  Receive Date: 20240809
  Receipt Date: 20240830
  Transmission Date: 20241017
  Serious: Yes (Hospitalization)
  Sender: SMITH AND NEPHEW
  Company Number: US-SMITH AND NEPHEW, INC-2024SMT00039

PATIENT
  Age: 64 Year
  Sex: Female
  Weight: 131.52 kg

DRUGS (1)
  1. COLLAGENASE SANTYL [Suspect]
     Active Substance: COLLAGENASE CLOSTRIDIUM HISTOLYTICUM
     Indication: Wound treatment
     Dosage: APPLIED NICKEL SIZE THICKNESS ON WOUND ON THE BACK SIDE OF RIGHT CALF, 1X/DAY
     Route: 061
     Dates: start: 20240205

REACTIONS (5)
  - Wound [Recovered/Resolved]
  - Beta haemolytic streptococcal infection [Recovered/Resolved]
  - Cellulitis streptococcal [Recovered/Resolved]
  - Staphylococcal infection [Recovered/Resolved]
  - Swelling [Recovered/Resolved]

NARRATIVE: CASE EVENT DATE: 20240715
